FAERS Safety Report 8979319 (Version 1)
Quarter: 2012Q4

REPORT INFORMATION
  Report Type: Report from Study
  Country: DE (occurrence: DE)
  Receive Date: 20121221
  Receipt Date: 20121221
  Transmission Date: 20130627
  Serious: Yes (Hospitalization)
  Sender: FDA-Public Use
  Company Number: DE-PFIZER INC-DE-WYE-H09845209

PATIENT
  Age: 59 Year
  Sex: Male

DRUGS (42)
  1. SIROLIMUS [Suspect]
     Indication: PROPHYLAXIS AGAINST RENAL TRANSPLANT REJECTION
     Dosage: 9.0 mg, 1x/day
     Route: 048
     Dates: start: 20031007
  2. SIROLIMUS [Suspect]
     Dosage: 3.0 mg, 1x/day
     Route: 048
     Dates: start: 20031010
  3. SIROLIMUS [Suspect]
     Dosage: 2.0 mg, 1x/day
     Route: 048
     Dates: start: 20031021
  4. SIROLIMUS [Suspect]
     Dosage: 2.5 mg, 1x/day
     Route: 048
     Dates: start: 20031022
  5. SIROLIMUS [Suspect]
     Dosage: 3.0 mg, 1x/day
     Route: 048
     Dates: start: 20031023, end: 20040322
  6. SIROLIMUS [Suspect]
     Dosage: 2.0 mg, 1x/day
     Route: 048
     Dates: start: 20040323, end: 20040709
  7. METHYLPREDNISOLONE SODIUM SUCCINATE [Suspect]
     Indication: PROPHYLAXIS AGAINST RENAL TRANSPLANT REJECTION
     Dosage: 125.0 mg, 1x/day
     Route: 042
     Dates: start: 20031006
  8. METHYLPREDNISOLONE SODIUM SUCCINATE [Suspect]
     Dosage: 250 mg, 1x/day
     Route: 042
     Dates: start: 20001007, end: 20031010
  9. METHYLPREDNISOLONE SODIUM SUCCINATE [Suspect]
     Dosage: 6 mg, 1x/day
     Route: 048
     Dates: start: 20031011
  10. METHYLPREDNISOLONE SODIUM SUCCINATE [Suspect]
     Dosage: 8 mg, 2x/day
     Route: 042
     Dates: start: 20031018
  11. METHYLPREDNISOLONE SODIUM SUCCINATE [Suspect]
     Dosage: 12 mg, daily
     Route: 042
     Dates: start: 20031025
  12. METHYLPREDNISOLONE SODIUM SUCCINATE [Suspect]
     Dosage: 8 mg, daily
     Route: 042
     Dates: start: 20031204
  13. METHYLPREDNISOLONE SODIUM SUCCINATE [Suspect]
     Dosage: 6 mg, daily
     Route: 042
     Dates: start: 20040131
  14. METHYLPREDNISOLONE SODIUM SUCCINATE [Suspect]
     Dosage: 2 mg, 1x/day
     Route: 048
     Dates: start: 20040220, end: 20040311
  15. DACLIZUMAB [Suspect]
     Indication: PROPHYLAXIS AGAINST RENAL TRANSPLANT REJECTION
     Dosage: 170 mg, 1 total
     Route: 042
     Dates: start: 20031006
  16. DACLIZUMAB [Suspect]
     Dosage: 85 mg, 1 in 2 weeks
     Route: 042
     Dates: start: 20031020, end: 20031203
  17. MYCOPHENOLATE MOFETIL [Suspect]
     Indication: PROPHYLAXIS AGAINST RENAL TRANSPLANT REJECTION
     Dosage: 500 mg, 1x/day
     Route: 048
     Dates: start: 20031007, end: 20031007
  18. MYCOPHENOLATE MOFETIL [Suspect]
     Dosage: 750 mg, 2x/day
     Route: 048
     Dates: start: 20031008
  19. MYCOPHENOLATE MOFETIL [Suspect]
     Dosage: 1750 mg (875 mg, 2 d)
     Route: 048
     Dates: start: 20031011
  20. MYCOPHENOLATE MOFETIL [Suspect]
     Dosage: 1500 mg (750 mg, 2 d)
     Route: 048
     Dates: start: 20031012, end: 20040322
  21. MYCOPHENOLATE MOFETIL [Suspect]
     Dosage: 750 mg, 1x/day
     Route: 048
     Dates: start: 20040323, end: 20040324
  22. CYCLOSPORINE [Suspect]
     Indication: PROPHYLAXIS AGAINST RENAL TRANSPLANT REJECTION
     Dosage: 175 mg, 1x/day
     Route: 048
     Dates: start: 20040824
  23. CYCLOSPORINE [Suspect]
     Dosage: 162.5 mg, 2x/day
     Route: 048
     Dates: start: 20040830
  24. CYCLOSPORINE [Suspect]
     Dosage: 300 mg (150 mg, 2 d)
     Route: 048
     Dates: start: 20040831
  25. CYCLOSPORINE [Suspect]
     Dosage: 250 mg (125 mg, 2 d)
     Route: 048
     Dates: start: 20040902
  26. CYCLOSPORINE [Suspect]
     Dosage: 100 mg (50 mg, 2 d)
     Route: 048
     Dates: start: 20050407
  27. CYCLOSPORINE [Suspect]
     Dosage: 250 mg (125 mg, 2 in 1 d)
     Route: 048
     Dates: start: 20050712
  28. TACROLIMUS [Suspect]
     Indication: PROPHYLAXIS AGAINST RENAL TRANSPLANT REJECTION
     Dosage: 2.75 mg, 2x/day
     Route: 048
     Dates: start: 20040709, end: 20040825
  29. URBASON [Suspect]
     Indication: PROPHYLAXIS AGAINST RENAL TRANSPLANT REJECTION
     Dosage: 2 mg, 1x/day
     Route: 048
     Dates: start: 20030304, end: 20030305
  30. ACETYLSALICYLIC ACID [Concomitant]
     Dosage: 100 mg, 1x/day
     Route: 048
     Dates: start: 20031011
  31. AMLODIPINE [Concomitant]
     Dosage: 5 mg, 1x/day
     Route: 048
     Dates: start: 20031118, end: 20040323
  32. DARBEPOETIN ALFA [Concomitant]
     Dosage: 50 ug, 2 weeks
     Route: 058
     Dates: start: 20031015, end: 20031027
  33. DOXAZOSIN [Concomitant]
     Route: 048
  34. METOPROLOL [Concomitant]
     Dosage: 95 mg, 1x/day
     Route: 048
     Dates: start: 20031008, end: 20040323
  35. BELOC ZOK [Concomitant]
     Dosage: 1 DF, 2x/day, one in the morning, one in the evening
     Route: 065
  36. PRAVASIN [Concomitant]
     Dosage: UNK
     Route: 048
     Dates: start: 20031008
  37. VESDIL [Concomitant]
     Dosage: 2.5 mg, 1x/day
     Route: 048
     Dates: start: 20031021, end: 20040323
  38. CIPROFLOXACIN [Concomitant]
     Dosage: 250 mg, 1x/day
     Route: 048
     Dates: start: 20031020, end: 20040219
  39. COTRIMOXAZOLE [Concomitant]
     Dosage: 400 mg, 1x/day
     Route: 048
     Dates: start: 20031017, end: 20040219
  40. FOSFOMYCIN [Concomitant]
     Dosage: 3 g, 1x/day
     Route: 042
     Dates: start: 20031006, end: 20031009
  41. GANCICLOVIR [Concomitant]
     Dosage: 500 mg, 1 in 2 d
     Route: 048
     Dates: start: 20031008
  42. GANCICLOVIR [Concomitant]
     Dosage: 500 mg, 1x/day
     Route: 048
     Dates: start: 20031014, end: 20040109

REACTIONS (3)
  - Gastric ulcer [Recovered/Resolved]
  - Gastritis [Recovered/Resolved]
  - Cytomegalovirus infection [Recovered/Resolved]
